FAERS Safety Report 5196787-3 (Version None)
Quarter: 2006Q4

REPORT INFORMATION
  Report Type: 
  Country: None (occurrence: None)
  Receive Date: 20061229
  Receipt Date: 20061229
  Transmission Date: 20070319
  Serious: No
  Sender: FDA-Public Use
  Company Number: None

PATIENT
  Age: 73 Year
  Sex: Male

DRUGS (2)
  1. PROCRIT [Suspect]
     Dosage: INJECTABLE
  2. PROCRIT [Suspect]
     Dosage: INJECTABLE

REACTIONS (5)
  - CARDIAC FAILURE CONGESTIVE [None]
  - DRUG DISPENSING ERROR [None]
  - HYPERTENSION [None]
  - INCORRECT DOSE ADMINISTERED [None]
  - MEDICATION ERROR [None]
